FAERS Safety Report 6817033-8 (Version None)
Quarter: 2010Q3

REPORT INFORMATION
  Report Type: 
  Country: None (occurrence: None)
  Receive Date: 20100706
  Receipt Date: 20100625
  Transmission Date: 20110219
  Serious: Yes (Hospitalization)
  Sender: FDA-Public Use
  Company Number: JP-ROCHE-707935

PATIENT
  Sex: Male
  Weight: 60 kg

DRUGS (4)
  1. ACTEMRA [Suspect]
     Indication: RHEUMATOID ARTHRITIS
     Route: 041
     Dates: start: 20100415, end: 20100513
  2. HYPEN [Suspect]
     Indication: RHEUMATOID ARTHRITIS
     Route: 048
     Dates: start: 20100323, end: 20100528
  3. GASLON N [Concomitant]
     Route: 048
     Dates: start: 20100323, end: 20100528
  4. GASPORT [Concomitant]
     Route: 048
     Dates: start: 20090915, end: 20100528

REACTIONS (1)
  - GASTROINTESTINAL HAEMORRHAGE [None]
